FAERS Safety Report 24752612 (Version 1)
Quarter: 2024Q4

REPORT INFORMATION
  Report Type: Spontaneous
  Country: US (occurrence: US)
  Receive Date: 20241219
  Receipt Date: 20241219
  Transmission Date: 20250114
  Serious: No
  Sender: STRIDES
  Company Number: US-STRIDES ARCOLAB LIMITED-2024SP013905

PATIENT
  Age: 86 Year
  Sex: Male

DRUGS (4)
  1. METHOTREXATE [Suspect]
     Active Substance: METHOTREXATE
     Indication: Transient acantholytic dermatosis
     Dosage: 5 MILLIGRAM, ONCE A WEEK
     Route: 065
  2. GABAPENTIN [Suspect]
     Active Substance: GABAPENTIN
     Indication: Transient acantholytic dermatosis
     Dosage: UNK
     Route: 065
  3. DIPHENHYDRAMINE [Concomitant]
     Active Substance: DIPHENHYDRAMINE
     Indication: Transient acantholytic dermatosis
     Dosage: UNK
     Route: 065
  4. TRIAMCINOLONE [Concomitant]
     Active Substance: TRIAMCINOLONE
     Indication: Transient acantholytic dermatosis
     Dosage: UNK
     Route: 061

REACTIONS (2)
  - Fatigue [Unknown]
  - Off label use [Unknown]
